FAERS Safety Report 22285523 (Version 1)
Quarter: 2023Q2

REPORT INFORMATION
  Report Type: Spontaneous
  Country: GB (occurrence: NO)
  Receive Date: 20230504
  Receipt Date: 20230504
  Transmission Date: 20230722
  Serious: Yes (Other)
  Sender: FDA-Public Use
  Company Number: None

PATIENT

DRUGS (10)
  1. LATUDA [Suspect]
     Active Substance: LURASIDONE HYDROCHLORIDE
     Indication: Prophylaxis
     Dosage: UNK, QD
     Route: 048
     Dates: start: 2022, end: 2022
  2. LATUDA [Suspect]
     Active Substance: LURASIDONE HYDROCHLORIDE
     Indication: Antipsychotic therapy
  3. ABILIFY [Suspect]
     Active Substance: ARIPIPRAZOLE
     Indication: Prophylaxis
     Dosage: UNK
     Route: 065
     Dates: start: 2022, end: 2022
  4. ZYPREXA [Suspect]
     Active Substance: OLANZAPINE
     Indication: Antipsychotic therapy
     Dosage: UNK
     Route: 065
     Dates: start: 2022, end: 2022
  5. ZYPREXA [Suspect]
     Active Substance: OLANZAPINE
     Indication: Prophylaxis
  6. SEROQUEL [Suspect]
     Active Substance: QUETIAPINE FUMARATE
     Indication: Prophylaxis
     Dosage: UNK
     Route: 065
     Dates: start: 2014, end: 2021
  7. SEROQUEL [Suspect]
     Active Substance: QUETIAPINE FUMARATE
     Indication: Anxiety
  8. LISDEXAMFETAMINE DIMESYLATE [Concomitant]
     Active Substance: LISDEXAMFETAMINE DIMESYLATE
     Indication: Attention deficit hyperactivity disorder
     Dosage: UNK
     Route: 065
     Dates: start: 2019
  9. DIAZEPAM [Concomitant]
     Active Substance: DIAZEPAM
     Indication: Anxiety
     Dosage: UNK
     Route: 065
     Dates: start: 2022
  10. DIAZEPAM [Concomitant]
     Active Substance: DIAZEPAM
     Indication: Restlessness

REACTIONS (8)
  - Major depression [Unknown]
  - Tic [Unknown]
  - Gastrointestinal disorder [Unknown]
  - Depressed mood [Unknown]
  - Nausea [Unknown]
  - Anxiety [Unknown]
  - Restlessness [Unknown]
  - Off label use [Recovered/Resolved]

NARRATIVE: CASE EVENT DATE: 20140101
